FAERS Safety Report 16714538 (Version 1)
Quarter: 2019Q3

REPORT INFORMATION
  Report Type: Spontaneous
  Country: MA (occurrence: MA)
  Receive Date: 20190819
  Receipt Date: 20190819
  Transmission Date: 20191004
  Serious: Yes (Other)
  Sender: FDA-Public Use
  Company Number: PHHY2019MA186880

PATIENT
  Age: 47 Year
  Sex: Female

DRUGS (1)
  1. METHOTREXATE. [Suspect]
     Active Substance: METHOTREXATE
     Indication: RHEUMATOID ARTHRITIS
     Dosage: 15 MG, QW
     Route: 065

REACTIONS (10)
  - Wernicke^s encephalopathy [Unknown]
  - Somnolence [Unknown]
  - Hallucination, visual [Unknown]
  - Disorientation [Unknown]
  - Vertigo [Unknown]
  - Multi-vitamin deficiency [Unknown]
  - Drug intolerance [Unknown]
  - Nystagmus [Unknown]
  - Areflexia [Unknown]
  - Memory impairment [Unknown]
